FAERS Safety Report 11160095 (Version 1)
Quarter: 2015Q2

REPORT INFORMATION
  Report Type: Report from Study
  Country: CA (occurrence: CA)
  Receive Date: 20150603
  Receipt Date: 20150603
  Transmission Date: 20150821
  Serious: Yes (Death)
  Sender: FDA-Public Use
  Company Number: PHHY2014CA073982

PATIENT
  Age: 44 Year
  Sex: Female

DRUGS (3)
  1. DESFERAL [Suspect]
     Active Substance: DEFEROXAMINE MESYLATE
     Indication: IRON OVERLOAD
     Dosage: UNK
     Route: 042
  2. EXJADE [Suspect]
     Active Substance: DEFERASIROX
     Indication: ANAEMIA
     Dosage: 1250 MG, QD
     Route: 048
     Dates: start: 20140528
  3. EXJADE [Suspect]
     Active Substance: DEFERASIROX
     Dosage: 2125 MG, QD
     Route: 048

REACTIONS (8)
  - Hypoaesthesia [Unknown]
  - Hypersensitivity [Unknown]
  - Dyspnoea [Unknown]
  - Dizziness [Unknown]
  - Blood glucose increased [Unknown]
  - Paraesthesia [Unknown]
  - Headache [Unknown]
  - Death [Fatal]

NARRATIVE: CASE EVENT DATE: 20140807
